FAERS Safety Report 15406903 (Version 1)
Quarter: 2018Q3

REPORT INFORMATION
  Report Type: Spontaneous
  Country: US (occurrence: US)
  Receive Date: 20180912
  Receipt Date: 20180912
  Transmission Date: 20181010
  Serious: No
  Sender: FDA-Public Use
  Company Number: None

PATIENT
  Age: 30 Year
  Sex: Male

DRUGS (1)
  1. GILENYA [Suspect]
     Active Substance: FINGOLIMOD HYDROCHLORIDE
     Indication: MULTIPLE SCLEROSIS
     Route: 048
     Dates: start: 20180405

REACTIONS (5)
  - Throat irritation [None]
  - Respiratory tract congestion [None]
  - Productive cough [None]
  - Cough [None]
  - Chest discomfort [None]

NARRATIVE: CASE EVENT DATE: 20180820
